FAERS Safety Report 8094473-3 (Version None)
Quarter: 2012Q1

REPORT INFORMATION
  Report Type: 
  Country: None (occurrence: None)
  Receive Date: 20120130
  Receipt Date: 20120117
  Transmission Date: 20120608
  Serious: Yes (Hospitalization)
  Sender: FDA-Public Use
  Company Number: US-ELI_LILLY_AND_COMPANY-US201112006579

PATIENT
  Sex: Male
  Weight: 57.596 kg

DRUGS (5)
  1. ZYPREXA RELPREVV [Suspect]
     Indication: SCHIZOPHRENIA
     Dosage: 210 MG, UNKNOWN
     Route: 030
     Dates: start: 20110622
  2. LITHIUM CARBONATE [Concomitant]
     Dosage: 300 MG, BID
     Route: 048
  3. COGENTIN [Concomitant]
     Dosage: 1 MG, TID
     Route: 048
  4. MULTIVITAMIN [Concomitant]
  5. AMBIEN [Concomitant]
     Dosage: 10 MG, PRN
     Route: 048

REACTIONS (3)
  - RECTAL PROLAPSE [None]
  - GASTROINTESTINAL DISORDER [None]
  - FAECAL INCONTINENCE [None]
